FAERS Safety Report 23733152 (Version 1)
Quarter: 2024Q2

REPORT INFORMATION
  Report Type: Spontaneous
  Country: IE (occurrence: IE)
  Receive Date: 20240411
  Receipt Date: 20240411
  Transmission Date: 20240716
  Serious: Yes (Other)
  Sender: FDA-Public Use
  Company Number: None

PATIENT
  Age: 23 Year
  Sex: Male
  Weight: 64 kg

DRUGS (3)
  1. FINASTERIDE [Suspect]
     Active Substance: FINASTERIDE
     Indication: Androgenetic alopecia
     Dosage: 1.25 MILLIGRAM
     Route: 048
     Dates: start: 20230201, end: 202402
  2. FINASTERIDE [Suspect]
     Active Substance: FINASTERIDE
     Dosage: 2.5 MILLIGRAM, QD
     Route: 048
     Dates: start: 202402, end: 20240308
  3. TRECLIN [CLINDAMYCIN PHOSPHATE;TRETINOIN] [Concomitant]
     Indication: Acne
     Dosage: PEA SIZE ONCE DAILY ON FACE
     Route: 062
     Dates: start: 20230201

REACTIONS (4)
  - Loss of libido [Not Recovered/Not Resolved]
  - Testicular pain [Not Recovered/Not Resolved]
  - Insomnia [Not Recovered/Not Resolved]
  - Emotional poverty [Not Recovered/Not Resolved]

NARRATIVE: CASE EVENT DATE: 20240219
